FAERS Safety Report 8171109-4 (Version None)
Quarter: 2012Q1

REPORT INFORMATION
  Report Type: 
  Country: None (occurrence: None)
  Receive Date: 20120113
  Receipt Date: 20110928
  Transmission Date: 20120608
  Serious: No
  Sender: FDA-Public Use
  Company Number: 2011S1000091

PATIENT

DRUGS (1)
  1. KRYSTEXXA [Suspect]
     Indication: GOUT

REACTIONS (2)
  - GOUT [None]
  - INSOMNIA [None]
